FAERS Safety Report 6710241-6 (Version None)
Quarter: 2010Q2

REPORT INFORMATION
  Report Type: 
  Country: None (occurrence: None)
  Receive Date: 20100430
  Receipt Date: 20100419
  Transmission Date: 20101027
  Serious: Yes (Other)
  Sender: FDA-Public Use
  Company Number: DSU-2010-00023

PATIENT
  Sex: Female
  Weight: 68.0396 kg

DRUGS (7)
  1. BENICAR [Suspect]
     Indication: HYPERTENSION
     Dosage: 20 MG (20 MG, QD), PER ORAL; 40 MG (40 MG, QD), PER ORAL
     Route: 048
     Dates: start: 20080102, end: 20080201
  2. BENICAR [Suspect]
     Indication: HYPERTENSION
     Dosage: 20 MG (20 MG, QD), PER ORAL; 40 MG (40 MG, QD), PER ORAL
     Route: 048
     Dates: start: 20080201
  3. NEORAL (CICLOSPORIN) (75 MILLIGRAM) (CICLOSPORIN) [Concomitant]
  4. PROCARDIA XL (NIFEDIPINE) (30 MILLIGRAM) (NIFEDIPINE) [Concomitant]
  5. PREMARIN (ESTROGENS CONJUGATED) (ESTROGENS CONJUGATED) [Concomitant]
  6. XANAX [Concomitant]
  7. ZOLOFT (SERTRALINE) (SERTRALINE) [Concomitant]

REACTIONS (7)
  - BLOOD ALKALINE PHOSPHATASE INCREASED [None]
  - DIALYSIS [None]
  - HAEMATOCRIT DECREASED [None]
  - HAEMOGLOBIN DECREASED [None]
  - RENAL FAILURE [None]
  - TRANSPLANT REJECTION [None]
  - WHITE BLOOD CELLS URINE POSITIVE [None]
